FAERS Safety Report 5753800-X (Version None)
Quarter: 2008Q2

REPORT INFORMATION
  Report Type: 
  Country: None (occurrence: None)
  Receive Date: 20080530
  Receipt Date: 20080521
  Transmission Date: 20081010
  Serious: Yes (Hospitalization)
  Sender: FDA-Public Use
  Company Number: FR-ASTRAZENECA-2008CG00756

PATIENT
  Age: 29205 Day
  Sex: Male

DRUGS (1)
  1. XYLOCAINE VISCOUS [Suspect]
     Indication: SKIN IRRITATION
     Route: 003
     Dates: start: 20080404, end: 20080407

REACTIONS (2)
  - APPLICATION SITE VESICLES [None]
  - INTENTIONAL DRUG MISUSE [None]
